FAERS Safety Report 9540154 (Version 1)
Quarter: 2013Q2

REPORT INFORMATION
  Report Type: Spontaneous
  Country: US (occurrence: None)
  Receive Date: 20130503
  Receipt Date: 20130503
  Transmission Date: 20140414
  Serious: No
  Sender: FDA-Public Use
  Company Number: 1000042232

PATIENT
  Age: 64 Year
  Sex: Female
  Weight: 78 kg

DRUGS (9)
  1. DALIRESP (ROFLUMILAST) (500 MICROGRAM, TABLETS) [Suspect]
     Indication: CHRONIC OBSTRUCTIVE PULMONARY DISEASE
     Route: 048
     Dates: start: 20121210
  2. VENTOLIN HFA (SALBUTAMOL SULFATE) (SALBUTAMOL SULFATE) [Concomitant]
  3. CARVEDILOL (CARVEDILOL) (CARVEDILOL) [Concomitant]
  4. DIOVAN (VALSARTAN ) (VALSARTAN) [Concomitant]
  5. CRESTOR (ROSUVASTATIN CALCIUM) (ROSUVASTATIN CALCIUM) [Concomitant]
  6. ZETIA (EZETIMIBE) (EZETIMIBE) [Concomitant]
  7. WELLBUTRIN (BUPROPION HYDROCHLORIDE) (BUPROPION HYDROCHLORIDE) [Concomitant]
  8. VITAMINS NOS (VITAMINS NOS) (VITAMINS NOS) [Concomitant]
  9. THYROID PILL (NOS) (THYROID PILL (NOS)) (THYROID PILL (NOS)) [Concomitant]

REACTIONS (8)
  - Weight decreased [None]
  - Eye pain [None]
  - Headache [None]
  - Influenza like illness [None]
  - Restless legs syndrome [None]
  - Insomnia [None]
  - Asthenia [None]
  - Decreased appetite [None]
